FAERS Safety Report 9144135 (Version 1)
Quarter: 2013Q1

REPORT INFORMATION
  Report Type: Spontaneous
  Country: GB (occurrence: GB)
  Receive Date: 20130306
  Receipt Date: 20130306
  Transmission Date: 20140127
  Serious: Yes (Other)
  Sender: FDA-Public Use
  Company Number: GB-ROCHE-1197616

PATIENT
  Sex: 0

DRUGS (1)
  1. ROACCUTANE [Suspect]
     Indication: ACNE
     Route: 064
     Dates: start: 20121206, end: 20130111

REACTIONS (2)
  - Foetal growth restriction [Unknown]
  - Maternal exposure timing unspecified [Unknown]
